FAERS Safety Report 19924380 (Version 1)
Quarter: 2021Q4

REPORT INFORMATION
  Report Type: Spontaneous
  Country: US (occurrence: US)
  Receive Date: 20211005
  Receipt Date: 20211005
  Transmission Date: 20220303
  Serious: Yes (Death)
  Sender: FDA-Public Use
  Company Number: None

PATIENT
  Age: 76 Year
  Sex: Male

DRUGS (1)
  1. GLEEVEC [Suspect]
     Active Substance: IMATINIB MESYLATE
     Indication: Chronic myeloid leukaemia
     Dosage: TAKE 4 TABLETS (400 MG TOTAL) BY MOUTH DAILY WITH A LARGE GLASS OF WATER AND A MEAL. YOU MAY DISSOLV
     Route: 048
     Dates: start: 20200811, end: 20210925

REACTIONS (1)
  - Death [None]

NARRATIVE: CASE EVENT DATE: 20210925
